FAERS Safety Report 8916414 (Version 3)
Quarter: 2016Q3

REPORT INFORMATION
  Report Type: Report from Study
  Country: GB (occurrence: GB)
  Receive Date: 20121120
  Receipt Date: 20160824
  Transmission Date: 20161109
  Serious: Yes (Hospitalization)
  Sender: FDA-Public Use
  Company Number: GB-PFIZER INC-2012286509

PATIENT
  Age: 16 Year
  Sex: Female
  Weight: 66 kg

DRUGS (27)
  1. PHOSPHATE-SANDOZ [Concomitant]
     Active Substance: SODIUM PHOSPHATE, MONOBASIC, ANHYDROUS
     Dosage: UNK
     Dates: start: 20100717
  2. OMEPRAZOLE. [Concomitant]
     Active Substance: OMEPRAZOLE
     Dosage: 20 MG, UNK
     Dates: start: 20100713
  3. PARACETAMOL [Concomitant]
     Active Substance: ACETAMINOPHEN
     Dosage: 4 G, UNK
     Dates: start: 20100909
  4. PHENYLEPHRINE HYDROCHLORIDE/TROPICAMIDE [Concomitant]
     Dosage: UNK
     Dates: start: 20100717
  5. GABAPENTIN. [Concomitant]
     Active Substance: GABAPENTIN
     Dosage: 1500 MG, UNK
     Dates: start: 20100909
  6. LEVOMEPROMAZINE [Concomitant]
     Active Substance: LEVOMEPROMAZINE
     Dosage: 6 MG, UNK
     Dates: start: 20100924, end: 20100929
  7. CALCIUM CARBONATE. [Concomitant]
     Active Substance: CALCIUM CARBONATE
     Dosage: 2.5 G, UNK
     Dates: start: 20100716
  8. NABILONE [Concomitant]
     Active Substance: NABILONE
     Dosage: 3 MG, UNK
     Dates: start: 20100714
  9. DEXAMETHASONE. [Concomitant]
     Active Substance: DEXAMETHASONE
     Dosage: 24 MG, UNK
     Dates: start: 20100713, end: 20100930
  10. SENNA [Concomitant]
     Active Substance: SENNA LEAF\SENNOSIDES\SENNOSIDES A AND B
     Dosage: 15 MG, UNK
     Dates: start: 20100621
  11. SANDO K [Concomitant]
     Dosage: 4 DF, UNK
     Dates: start: 20100724
  12. TROPICAMIDE. [Concomitant]
     Active Substance: TROPICAMIDE
  13. IFOSFAMIDE. [Suspect]
     Active Substance: IFOSFAMIDE
     Indication: RHABDOMYOSARCOMA
     Dosage: 6 G, CYCLIC, TWICE PER CYCLE
     Route: 042
     Dates: start: 20100618
  14. MAGNESIUM ASPARTATE [Concomitant]
     Active Substance: MAGNESIUM ASPARTATE
     Dosage: 20 MMOL, UNK
     Dates: start: 20100612
  15. COTRIMOXAZOLE [Concomitant]
     Active Substance: SULFAMETHOXAZOLE\TRIMETHOPRIM
     Dosage: 960 MG, UNK
     Dates: start: 20100621
  16. VINCRISTINE SULFATE. [Suspect]
     Active Substance: VINCRISTINE SULFATE
     Indication: RHABDOMYOSARCOMA
     Dosage: 2 MG, CYCLIC, ONCE PER CYCLE
     Route: 042
     Dates: start: 20100618
  17. FLUCONAZOLE. [Concomitant]
     Active Substance: FLUCONAZOLE
     Dosage: 150 MG, UNK
     Dates: start: 20100924
  18. DACTINOMYCIN [Suspect]
     Active Substance: DACTINOMYCIN
     Indication: RHABDOMYOSARCOMA
     Dosage: 2 MG, CYCLIC (2 MG, CYCLIC, ONCE PER CYCLE)
     Route: 042
     Dates: start: 20100618
  19. AMITRIPTYLINE [Concomitant]
     Active Substance: AMITRIPTYLINE
     Dosage: 25 MG, UNK
     Dates: start: 20101015
  20. DOXORUBICIN HCL [Suspect]
     Active Substance: DOXORUBICIN HYDROCHLORIDE
     Indication: RHABDOMYOSARCOMA
     Dosage: 60 MG, CYCLIC, TWICE PER CYCLE
     Route: 042
     Dates: start: 20100618
  21. FENTANYL CITRATE. [Concomitant]
     Active Substance: FENTANYL CITRATE
     Dosage: 50 UG, EVERY 3 DAYS
     Dates: start: 20100713
  22. SEVREDOL [Concomitant]
     Active Substance: MORPHINE
     Dosage: 20 MG, EVERY HOURS, AS NEEDED
     Dates: start: 20100617
  23. GRANISETRON [Concomitant]
     Active Substance: GRANISETRON
     Dosage: 1 MG, UNK
     Dates: start: 20100620
  24. ONDANSETRON [Concomitant]
     Active Substance: ONDANSETRON
     Dosage: 24 MG, UNK
     Dates: start: 20100722
  25. TAZOCIN [Concomitant]
     Active Substance: PIPERACILLIN SODIUM\TAZOBACTAM SODIUM
     Dosage: 18 G, UNK
     Dates: start: 20100722
  26. LACTULOSE. [Concomitant]
     Active Substance: LACTULOSE
     Dosage: 15 MG, UNK
     Dates: start: 20100725
  27. METOCLOPRAMIDE. [Concomitant]
     Active Substance: METOCLOPRAMIDE
     Dosage: 30 MG, UNK
     Dates: start: 20100614

REACTIONS (2)
  - Febrile neutropenia [Recovered/Resolved]
  - Presyncope [Recovered/Resolved]

NARRATIVE: CASE EVENT DATE: 20100725
